FAERS Safety Report 6022418-6 (Version None)
Quarter: 2008Q4

REPORT INFORMATION
  Report Type: 
  Country: None (occurrence: None)
  Receive Date: 20081230
  Receipt Date: 20081218
  Transmission Date: 20090506
  Serious: Yes (Hospitalization, Other)
  Sender: FDA-Public Use
  Company Number: US-PFIZER INC-2006088635

PATIENT
  Sex: Male
  Weight: 79.83 kg

DRUGS (19)
  1. DILANTIN [Suspect]
     Indication: CONVULSION
     Route: 048
     Dates: start: 20030211, end: 20030317
  2. CEREBYX [Suspect]
     Indication: CONVULSION
     Route: 042
     Dates: start: 20030211, end: 20030216
  3. PLAVIX [Suspect]
     Indication: ATRIAL FIBRILLATION
     Route: 048
     Dates: start: 20030205, end: 20030301
  4. PLAVIX [Suspect]
     Indication: CEREBROVASCULAR ACCIDENT
  5. MACROBID [Suspect]
     Indication: URINARY TRACT INFECTION
     Route: 048
     Dates: start: 20030309, end: 20030315
  6. TAMSULOSIN HCL [Concomitant]
     Indication: BENIGN PROSTATIC HYPERPLASIA
     Route: 048
     Dates: start: 20030201
  7. HYDROCHLOROTHIAZIDE [Concomitant]
     Indication: HYPERTENSION
     Route: 048
  8. K-DUR [Concomitant]
     Indication: HYPERTENSION
     Route: 048
  9. KEFLEX [Concomitant]
     Route: 048
  10. LEVAQUIN [Concomitant]
     Indication: PROPHYLAXIS
     Route: 042
     Dates: start: 20030210
  11. MICARDIS HCT [Concomitant]
     Indication: HYPERTENSION
     Route: 048
  12. NORVASC [Concomitant]
     Route: 048
  13. TOPROL-XL [Concomitant]
     Route: 048
  14. PROMETHAZINE [Concomitant]
     Indication: PROPHYLAXIS
     Route: 065
     Dates: start: 20030210
  15. ZOFRAN [Concomitant]
     Indication: PROPHYLAXIS
     Route: 042
     Dates: start: 20030210
  16. CORTISPORIN OINTMENT [Concomitant]
     Indication: PROPHYLAXIS
     Route: 061
     Dates: start: 20030210
  17. ACETYLSALICYLIC ACID SRT [Concomitant]
     Route: 048
  18. PERI-COLACE [Concomitant]
     Route: 048
     Dates: start: 20030210
  19. ZINCATE [Concomitant]
     Route: 048
     Dates: start: 20030201

REACTIONS (16)
  - ANAEMIA [None]
  - ANTICONVULSANT DRUG LEVEL BELOW THERAPEUTIC [None]
  - CANDIDIASIS [None]
  - CHEST PAIN [None]
  - CONVULSION [None]
  - DRUG HYPERSENSITIVITY [None]
  - DYSPHAGIA [None]
  - FALL [None]
  - HAEMATURIA [None]
  - LOSS OF CONSCIOUSNESS [None]
  - MALNUTRITION [None]
  - MENTAL STATUS CHANGES [None]
  - RENAL FAILURE [None]
  - STEVENS-JOHNSON SYNDROME [None]
  - URINARY BLADDER HAEMORRHAGE [None]
  - URINARY TRACT INFECTION [None]
